FAERS Safety Report 13089161 (Version 1)
Quarter: 2017Q1

REPORT INFORMATION
  Report Type: Spontaneous
  Country: US (occurrence: US)
  Receive Date: 20170105
  Receipt Date: 20170105
  Transmission Date: 20170428
  Serious: No
  Sender: FDA-Public Use
  Company Number: US-SA-2016SA001650

PATIENT
  Age: 71 Year
  Sex: Female

DRUGS (1)
  1. ARALEN [Suspect]
     Active Substance: CHLOROQUINE PHOSPHATE
     Route: 065

REACTIONS (1)
  - Hypersensitivity [Unknown]
